FAERS Safety Report 8661549 (Version 2)
Quarter: 2012Q4

REPORT INFORMATION
  Report Type: Spontaneous
  Country: JP (occurrence: None)
  Receive Date: 20120626
  Receipt Date: 20121009
  Transmission Date: 20130627
  Serious: Yes (Life-Threatening)
  Sender: FDA-Public Use
  Company Number: TCI2012A03144

PATIENT
  Age: 71 Year
  Sex: Male

DRUGS (9)
  1. ACTOS [Suspect]
     Indication: TYPE 2 DIABETES MELLITUS
     Route: 048
     Dates: start: 20070803, end: 20080110
  2. ACTOS [Suspect]
     Indication: TYPE 2 DIABETES MELLITUS
     Route: 048
     Dates: start: 20080111, end: 20120614
  3. ECARD [Suspect]
     Indication: HYPERTENSION
     Route: 048
     Dates: start: 20090626, end: 20100429
  4. BLOPRESS (CANDESARTAN CILEXETIL) [Concomitant]
  5. ADALAT CR (NIFEDIPINE) [Concomitant]
  6. OLMETEC (OLMESARTAN MEDOXOMIL) [Concomitant]
  7. GASLON N (IRSOGLADINE MALEATE) [Concomitant]
  8. HALCION (TRIAZOLAM) [Concomitant]
  9. NORVASC (AMLODIPINE BESILATE) [Concomitant]

REACTIONS (1)
  - Renal cancer [None]
